FAERS Safety Report 21003933 (Version 3)
Quarter: 2022Q3

REPORT INFORMATION
  Report Type: Spontaneous
  Country: US (occurrence: US)
  Receive Date: 20220624
  Receipt Date: 20220815
  Transmission Date: 20221027
  Serious: Yes (Other)
  Sender: FDA-Public Use
  Company Number: US-BAYER-2022A087875

PATIENT
  Age: 40 Year
  Sex: Female
  Weight: 59.864 kg

DRUGS (3)
  1. KYLEENA [Suspect]
     Active Substance: LEVONORGESTREL
     Indication: Contraception
     Dosage: 17.5?G/DAY
     Route: 015
     Dates: start: 20180607
  2. FLUCONAZOLE [Concomitant]
     Active Substance: FLUCONAZOLE
  3. NAPROXEN [Concomitant]
     Active Substance: NAPROXEN

REACTIONS (8)
  - Vaginal haemorrhage [None]
  - Genital haemorrhage [None]
  - Acne [None]
  - Vulvovaginal candidiasis [None]
  - Vaginal discharge [None]
  - Bacterial vaginosis [None]
  - Fungal infection [None]
  - Herpes simplex [None]

NARRATIVE: CASE EVENT DATE: 20180615
